FAERS Safety Report 19146309 (Version 1)
Quarter: 2021Q2

REPORT INFORMATION
  Report Type: Spontaneous
  Country: AU (occurrence: AU)
  Receive Date: 20210416
  Receipt Date: 20210416
  Transmission Date: 20210717
  Serious: Yes (Hospitalization, Other)
  Sender: FDA-Public Use
  Company Number: AU-PFIZER INC-2021377725

PATIENT
  Sex: Male

DRUGS (1)
  1. LIPITOR [Suspect]
     Active Substance: ATORVASTATIN CALCIUM
     Dosage: 80 MG, TWICE A DAY

REACTIONS (6)
  - Dyspnoea [Unknown]
  - Chills [Unknown]
  - Myocardial infarction [Unknown]
  - Asthenia [Unknown]
  - Hallucination [Unknown]
  - Liver function test increased [Unknown]
